FAERS Safety Report 7044598 (Version 2)
Quarter: 2014Q3

REPORT INFORMATION
  Report Type: Spontaneous
  Country: IT (occurrence: None)
  Receive Date: 20090624
  Receipt Date: 20140711
  Transmission Date: 20150326
  Serious: Yes (Other)
  Sender: FDA-Public Use
  Company Number: 304280

PATIENT
  Age: 80 Year
  Sex: Female

DRUGS (7)
  1. METOPROLOL [Suspect]
     Active Substance: METOPROLOL
     Indication: ANGINA UNSTABLE
  2. RAMIPRIL. [Concomitant]
     Active Substance: RAMIPRIL
  3. SIMVASTATIN. [Concomitant]
     Active Substance: SIMVASTATIN
  4. (ORGANIC NITRATES) [Concomitant]
  5. DOBUTAMINE HYDROCHLORIDE. [Suspect]
     Active Substance: DOBUTAMINE HYDROCHLORIDE
     Indication: STRESS ECHOCARDIOGRAM
     Dosage: 5 UG/KG PER MIN, INCREASED STEPWISE TO 40 UG/KG PER MIN, EVERY 3 MIN ; INTRAVENOUS DRIP
     Route: 041
  6. ASPIRIN. [Concomitant]
     Active Substance: ASPIRIN
  7. HEPARIN [Concomitant]
     Active Substance: HEPARIN SODIUM

REACTIONS (4)
  - Arteriospasm coronary [None]
  - Myocardial ischaemia [None]
  - Sinus tachycardia [None]
  - Akinesia [None]
